FAERS Safety Report 7936920-0 (Version None)
Quarter: 2011Q4

REPORT INFORMATION
  Report Type: 
  Country: None (occurrence: None)
  Receive Date: 20111123
  Receipt Date: 20111121
  Transmission Date: 20120403
  Serious: Yes (Other)
  Sender: FDA-Public Use
  Company Number: US-PFIZER INC-2011284937

PATIENT
  Sex: Female

DRUGS (6)
  1. LYRICA [Suspect]
     Indication: NEUROPATHY PERIPHERAL
     Dosage: 100 MG, 1X/DAY
     Route: 048
     Dates: start: 20110901, end: 20111001
  2. LYRICA [Suspect]
     Dosage: 50MG AT NOON+100MG AT NIGHT
     Route: 048
     Dates: start: 20111001
  3. LYRICA [Suspect]
     Dosage: UNK
     Route: 048
  4. IBUPROFEN [Concomitant]
     Indication: NEURALGIA
     Dosage: UNK
  5. CYMBALTA [Concomitant]
     Indication: NEURALGIA
     Dosage: UNK
  6. LYRICA [Suspect]
     Indication: TARSAL TUNNEL SYNDROME
     Dosage: 50 MG, 1X/DAY
     Route: 048
     Dates: start: 20110901, end: 20110901

REACTIONS (1)
  - OEDEMA PERIPHERAL [None]
